FAERS Safety Report 6405204-4 (Version None)
Quarter: 2009Q4

REPORT INFORMATION
  Report Type: 
  Country: None (occurrence: None)
  Receive Date: 20091019
  Receipt Date: 20091008
  Transmission Date: 20100525
  Serious: Yes (Hospitalization)
  Sender: FDA-Public Use
  Company Number: PHHY2009TR43741

PATIENT

DRUGS (1)
  1. TEGRETOL [Suspect]
     Dosage: 600 MG

REACTIONS (1)
  - POISONING [None]
